FAERS Safety Report 16686540 (Version 2)
Quarter: 2020Q1

REPORT INFORMATION
  Report Type: Report from Study
  Country: US (occurrence: US)
  Receive Date: 20190809
  Receipt Date: 20200128
  Transmission Date: 20200409
  Serious: Yes (Hospitalization, Other)
  Sender: FDA-Public Use
  Company Number: US-UCBSA-2018034736

PATIENT
  Age: 67 Year
  Sex: Female

DRUGS (2)
  1. LEVETIRACETAM. [Suspect]
     Active Substance: LEVETIRACETAM
     Indication: SEIZURE
  2. LEVETIRACETAM. [Suspect]
     Active Substance: LEVETIRACETAM
     Indication: PARTIAL SEIZURES
     Dosage: 1500 MG, 2X/DAY (BID)
     Route: 048
     Dates: start: 20170510

REACTIONS (5)
  - Fall [Unknown]
  - Lung neoplasm malignant [Not Recovered/Not Resolved]
  - Joint injury [Unknown]
  - Off label use [Unknown]
  - Femur fracture [Unknown]

NARRATIVE: CASE EVENT DATE: 20170517
